FAERS Safety Report 9689453 (Version 1)
Quarter: 2013Q4

REPORT INFORMATION
  Report Type: Spontaneous
  Country: ES (occurrence: ES)
  Receive Date: 20131114
  Receipt Date: 20131114
  Transmission Date: 20140711
  Serious: Yes (Other)
  Sender: FDA-Public Use
  Company Number: ES-GILEAD-2013-0087726

PATIENT
  Age: 91 Year
  Sex: Female

DRUGS (1)
  1. RANOLAZINE [Suspect]
     Indication: ISCHAEMIC CARDIOMYOPATHY
     Dosage: 375 MG, BID
     Route: 048
     Dates: start: 20121213, end: 20121216

REACTIONS (1)
  - Biliary colic [Recovered/Resolved]
